FAERS Safety Report 6581251-7 (Version None)
Quarter: 2010Q1

REPORT INFORMATION
  Report Type: 
  Country: None (occurrence: None)
  Receive Date: 20100215
  Receipt Date: 20100202
  Transmission Date: 20100710
  Serious: Yes (Hospitalization)
  Sender: FDA-Public Use
  Company Number: IN-ASTRAZENECA-2010SE05269

PATIENT
  Age: 10936 Day
  Sex: Male
  Weight: 60 kg

DRUGS (2)
  1. SEROQUEL XR [Suspect]
     Indication: MANIA
     Route: 048
     Dates: start: 20100112, end: 20100201
  2. LITHIUM CODE NOT BROKEN [Suspect]
     Indication: MANIA
     Dosage: TWICE A DAY
     Route: 048
     Dates: start: 20100112, end: 20100201

REACTIONS (6)
  - AGGRESSION [None]
  - CONDITION AGGRAVATED [None]
  - INSOMNIA [None]
  - IRRITABILITY [None]
  - MANIA [None]
  - PSYCHOMOTOR HYPERACTIVITY [None]
